FAERS Safety Report 6145050-2 (Version None)
Quarter: 2009Q2

REPORT INFORMATION
  Report Type: 
  Country: None (occurrence: None)
  Receive Date: 20090401
  Receipt Date: 20090401
  Transmission Date: 20091009
  Serious: Yes (Death)
  Sender: FDA-Public Use
  Company Number: None

PATIENT
  Age: 62 Year
  Sex: Female
  Weight: 57.2 kg

DRUGS (11)
  1. OXALIPLATIN -127MG- -85MG/M2 [Suspect]
     Indication: PANCREATIC CARCINOMA
     Dosage: -127MG- - 85MG/M2 IV
     Route: 042
     Dates: start: 20090122, end: 20090216
  2. ORAL CAPECITABINE -330MG- [Suspect]
     Indication: PANCREATIC CARCINOMA
     Dosage: CAPE -330MG- PO
     Route: 048
     Dates: start: 20090122, end: 20090216
  3. ORAL SORAFINIB -200MGBI [Suspect]
     Dosage: SORAFINIB -200MG-
  4. COUMADIN [Concomitant]
  5. VALTREX [Concomitant]
  6. DESYREL [Concomitant]
  7. DILAUDID [Concomitant]
  8. DURAGESIC-100 [Concomitant]
  9. PANCREASE [Concomitant]
  10. EFFEXOR [Concomitant]
  11. ULTRAM [Concomitant]

REACTIONS (3)
  - DEEP VEIN THROMBOSIS [None]
  - DISEASE PROGRESSION [None]
  - PAIN [None]
